FAERS Safety Report 14358006 (Version 6)
Quarter: 2018Q3

REPORT INFORMATION
  Report Type: Report from Study
  Country: US (occurrence: US)
  Receive Date: 20180105
  Receipt Date: 20180803
  Transmission Date: 20181010
  Serious: Yes (Hospitalization, Other)
  Sender: FDA-Public Use
  Company Number: US-AMGEN-USASP2017185328

PATIENT
  Age: 82 Year
  Sex: Female

DRUGS (2)
  1. REPATHA [Suspect]
     Active Substance: EVOLOCUMAB
     Indication: HYPERCHOLESTEROLAEMIA
     Dosage: 140 MG, QMO
     Route: 058
     Dates: start: 2017
  2. REPATHA [Suspect]
     Active Substance: EVOLOCUMAB
     Indication: HYPERLIPIDAEMIA
     Dosage: 140 MG, Q2WK
     Route: 058
     Dates: start: 201704

REACTIONS (11)
  - Osteoarthritis [Unknown]
  - Off label use [Unknown]
  - Urinary tract infection [Unknown]
  - Muscle mass [Unknown]
  - Productive cough [Unknown]
  - Sepsis [Unknown]
  - Seasonal allergy [Unknown]
  - Musculoskeletal disorder [Unknown]
  - Aphonia [Unknown]
  - Muscle spasms [Recovering/Resolving]
  - Blood glucose increased [Unknown]

NARRATIVE: CASE EVENT DATE: 2017
